FAERS Safety Report 5450622-4 (Version None)
Quarter: 2007Q3

REPORT INFORMATION
  Report Type: 
  Country: None (occurrence: None)
  Receive Date: 20070910
  Receipt Date: 20070827
  Transmission Date: 20080115
  Serious: Yes (Hospitalization)
  Sender: FDA-Public Use
  Company Number: POMP-11169

PATIENT
  Age: 1 Year
  Sex: Female
  Weight: 10 kg

DRUGS (1)
  1. MYOZYME [Suspect]
     Indication: GLYCOGEN STORAGE DISEASE TYPE II
     Dosage: 20 MG/KG Q2WKS IV
     Route: 042
     Dates: start: 20061027

REACTIONS (13)
  - ASPIRATION [None]
  - BRADYCARDIA [None]
  - CATHETER RELATED INFECTION [None]
  - CULTURE POSITIVE [None]
  - DEVICE FAILURE [None]
  - DEVICE RELATED INFECTION [None]
  - FUNGAL INFECTION [None]
  - INFUSION RELATED REACTION [None]
  - RESPIRATORY DISTRESS [None]
  - RESPIRATORY FAILURE [None]
  - RESPIRATORY SYNCYTIAL VIRUS INFECTION [None]
  - SEPSIS [None]
  - WEIGHT GAIN POOR [None]
